FAERS Safety Report 18811506 (Version 3)
Quarter: 2021Q3

REPORT INFORMATION
  Report Type: Report from Study
  Country: US (occurrence: US)
  Receive Date: 20210129
  Receipt Date: 20210713
  Transmission Date: 20211014
  Serious: Yes (Death)
  Sender: FDA-Public Use
  Company Number: US-ARBOR PHARMACEUTICALS, LLC-US-2021ARB000092

PATIENT
  Sex: Female

DRUGS (10)
  1. TRIPTODUR [Suspect]
     Active Substance: TRIPTORELIN
     Indication: PRODUCT USED FOR UNKNOWN INDICATION
     Dosage: UNK, SINGLE
     Route: 030
     Dates: start: 20201210, end: 20201210
  2. LEVETIRACETAM. [Concomitant]
     Active Substance: LEVETIRACETAM
     Indication: SEIZURE
     Route: 048
  3. TRIPTODUR [Suspect]
     Active Substance: TRIPTORELIN
  4. POLYETHYLENE GLYCOL [Concomitant]
     Active Substance: POLYETHYLENE GLYCOLS
     Indication: PRODUCT USED FOR UNKNOWN INDICATION
     Dosage: 17 G, QD
     Route: 048
  5. TRIPTODUR [Suspect]
     Active Substance: TRIPTORELIN
  6. LEVOTHYROXINE. [Concomitant]
     Active Substance: LEVOTHYROXINE
     Indication: HYPOTHYROIDISM
     Dosage: 37.5 MG, QD
     Route: 048
  7. MIDAZOLAM. [Concomitant]
     Active Substance: MIDAZOLAM
     Indication: SEIZURE
     Dosage: 1.3 ML, PRN
     Route: 045
  8. RUFINAMIDE [Concomitant]
     Active Substance: RUFINAMIDE
     Indication: SEIZURE
     Dosage: 600 MG, BID
     Route: 048
  9. CLOBAZAM. [Concomitant]
     Active Substance: CLOBAZAM
     Indication: SEIZURE
     Dosage: 2.5 MG, BID
     Route: 048
  10. VITAMIN D                          /00107901/ [Concomitant]
     Active Substance: ERGOCALCIFEROL
     Indication: PRODUCT USED FOR UNKNOWN INDICATION
     Dosage: 800 IU, QD
     Route: 048

REACTIONS (1)
  - Brain neoplasm [Fatal]
